FAERS Safety Report 23133900 (Version 4)
Quarter: 2023Q4

REPORT INFORMATION
  Report Type: Spontaneous
  Country: CA (occurrence: CA)
  Receive Date: 20231101
  Receipt Date: 20231206
  Transmission Date: 20240110
  Serious: Yes (Death, Life-Threatening, Hospitalization)
  Sender: FDA-Public Use
  Company Number: CA-PFIZER INC-PV202300177218

PATIENT
  Sex: Female

DRUGS (1)
  1. VARENICLINE TARTRATE [Suspect]
     Active Substance: VARENICLINE TARTRATE
     Dosage: UNK
     Dates: start: 2009

REACTIONS (5)
  - Breast cancer [Fatal]
  - Lung neoplasm malignant [Fatal]
  - Suicide attempt [Unknown]
  - Intentional self-injury [Unknown]
  - Cancer pain [Unknown]
